FAERS Safety Report 7105828-5 (Version None)
Quarter: 2010Q4

REPORT INFORMATION
  Report Type: 
  Country: None (occurrence: None)
  Receive Date: 20101110
  Receipt Date: 20101101
  Transmission Date: 20110411
  Serious: Yes (Death)
  Sender: FDA-Public Use
  Company Number: UTC-001467

PATIENT
  Age: 55 Year
  Sex: Male
  Weight: 104.5 kg

DRUGS (14)
  1. TYVASO [Suspect]
     Indication: PULMONARY ARTERIAL HYPERTENSION
     Dosage: 216 MCG (54 MCG, 4 IN 1 D), INHALATION
     Route: 055
     Dates: start: 20100222
  2. ALDACTONE [Concomitant]
  3. REVATIO [Concomitant]
  4. NEURONTIN [Concomitant]
  5. VITAMIN D [Concomitant]
  6. KLOR-CON [Concomitant]
  7. AMARYL [Concomitant]
  8. ULORIC [Concomitant]
  9. ASPIRIN [Concomitant]
  10. COREG [Concomitant]
  11. CYTOMEL [Concomitant]
  12. LASIX [Concomitant]
  13. TRACLEER [Concomitant]
  14. VASOTEC [Concomitant]

REACTIONS (1)
  - MYOCARDIAL INFARCTION [None]
